FAERS Safety Report 17215601 (Version 2)
Quarter: 2020Q1

REPORT INFORMATION
  Report Type: Spontaneous
  Country: US (occurrence: US)
  Receive Date: 20191230
  Receipt Date: 20200203
  Transmission Date: 20200409
  Serious: No
  Sender: FDA-Public Use
  Company Number: US-BAUSCH-BL-2019-064777

PATIENT
  Age: 87 Year
  Sex: Female
  Weight: 53.57 kg

DRUGS (2)
  1. BEPREVE [Suspect]
     Active Substance: BEPOTASTINE BESILATE
     Indication: EYE PRURITUS
     Dosage: IN EVENING
     Route: 047
     Dates: start: 20191208, end: 20191209
  2. LEVOTHYROXINE. [Concomitant]
     Active Substance: LEVOTHYROXINE
     Indication: HYPOTHYROIDISM
     Route: 048

REACTIONS (4)
  - Dry eye [Recovered/Resolved]
  - Abnormal sensation in eye [Recovered/Resolved]
  - Inappropriate schedule of product administration [Unknown]
  - Vision blurred [Recovered/Resolved]

NARRATIVE: CASE EVENT DATE: 20191208
